FAERS Safety Report 6278513-X (Version None)
Quarter: 2009Q3

REPORT INFORMATION
  Report Type: 
  Country: None (occurrence: None)
  Receive Date: 20090721
  Receipt Date: 20090707
  Transmission Date: 20100115
  Serious: Yes (Hospitalization)
  Sender: FDA-Public Use
  Company Number: 232864K08USA

PATIENT
  Age: 42 Year
  Sex: Female
  Weight: 68 kg

DRUGS (8)
  1. REBIF [Suspect]
     Indication: MULTIPLE SCLEROSIS
     Dosage: 44 MCG, 3 IN 1 WEEKS, SUBCUTANEOUS
     Route: 058
     Dates: start: 20080827
  2. GABAPENTIN [Concomitant]
  3. DIVALPROEX EXTENDED RELEASE (VALPROATE SEMISODIUM) [Concomitant]
  4. CYMBALTA [Concomitant]
  5. AMANTADINE HCL [Concomitant]
  6. BUSPIRONE HCL [Concomitant]
  7. TIZANIDINE HCL [Concomitant]
  8. DIPHYNHYDRAMINE (DIPHENHYDRAMINE) [Concomitant]

REACTIONS (14)
  - CONDITION AGGRAVATED [None]
  - DYSPHAGIA [None]
  - EATING DISORDER [None]
  - EMOTIONAL DISORDER [None]
  - FATIGUE [None]
  - GASTRIC ULCER [None]
  - MULTIPLE ALLERGIES [None]
  - MULTIPLE SCLEROSIS [None]
  - MUSCULAR WEAKNESS [None]
  - NASOPHARYNGITIS [None]
  - OESOPHAGEAL ULCER [None]
  - SINUSITIS [None]
  - TREMOR [None]
  - WEIGHT DECREASED [None]
